FAERS Safety Report 5018224-1 (Version None)
Quarter: 2006Q2

REPORT INFORMATION
  Report Type: 
  Country: None (occurrence: None)
  Receive Date: 20060530
  Receipt Date: 20060516
  Transmission Date: 20061013
  Serious: Yes (Hospitalization, Other)
  Sender: FDA-Public Use
  Company Number: 2006063880

PATIENT
  Sex: Male

DRUGS (1)
  1. SOLU-CORTEF [Suspect]
     Indication: PREMEDICATION
     Dosage: OTHER

REACTIONS (1)
  - BRONCHOSPASM [None]
